FAERS Safety Report 9220827 (Version 5)
Quarter: 2014Q1

REPORT INFORMATION
  Report Type: Spontaneous
  Country: US (occurrence: US)
  Receive Date: 20130409
  Receipt Date: 20140306
  Transmission Date: 20141002
  Serious: Yes (Hospitalization, Other)
  Sender: FDA-Public Use
  Company Number: US-009507513-1304USA002134

PATIENT
  Sex: Female

DRUGS (3)
  1. FOSAMAX [Suspect]
     Indication: OSTEOPOROSIS
     Dosage: 10 MG, UNK
     Route: 048
     Dates: start: 199510, end: 200201
  2. FOSAMAX [Suspect]
     Dosage: 70 MG, UNK
     Route: 048
     Dates: start: 200201, end: 200802
  3. ALENDRONATE SODIUM [Suspect]
     Indication: OSTEOPOROSIS
     Dosage: 70 MG, UNK
     Route: 048
     Dates: start: 200802, end: 201012

REACTIONS (38)
  - Femur fracture [Unknown]
  - Osteonecrosis [Unknown]
  - Intramedullary rod insertion [Unknown]
  - Pancreatitis [Unknown]
  - Knee arthroplasty [Unknown]
  - Knee arthroplasty [Unknown]
  - Femur fracture [Unknown]
  - Contusion [Unknown]
  - Knee arthroplasty [Unknown]
  - Knee arthroplasty [Unknown]
  - Diabetes mellitus [Unknown]
  - Rheumatoid arthritis [Unknown]
  - Hypertension [Unknown]
  - Pubis fracture [Unknown]
  - Osteopenia [Unknown]
  - Fracture nonunion [Unknown]
  - Osteoarthritis [Unknown]
  - Ileus [Unknown]
  - Bone disorder [Unknown]
  - Varicose vein operation [Unknown]
  - Hypothyroidism [Unknown]
  - Atrial fibrillation [Unknown]
  - Transient ischaemic attack [Unknown]
  - Chronic obstructive pulmonary disease [Unknown]
  - Fall [Unknown]
  - Coordination abnormal [Unknown]
  - Cerebral atrophy [Unknown]
  - Hypoalbuminaemia [Unknown]
  - Hypoglycaemia [Unknown]
  - Hiatus hernia [Unknown]
  - Heart valve incompetence [Unknown]
  - Anaemia [Unknown]
  - Arthritis [Not Recovered/Not Resolved]
  - Cardiovascular disorder [Unknown]
  - Depression [Unknown]
  - Oedema peripheral [Unknown]
  - Arthralgia [Not Recovered/Not Resolved]
  - Gastrooesophageal reflux disease [Unknown]
